FAERS Safety Report 18312725 (Version 1)
Quarter: 2020Q3

REPORT INFORMATION
  Report Type: Spontaneous
  Country: CA (occurrence: CA)
  Receive Date: 20200925
  Receipt Date: 20200925
  Transmission Date: 20201103
  Serious: Yes (Other)
  Sender: FDA-Public Use
  Company Number: CA-PFIZER INC-2020365163

PATIENT
  Sex: Female

DRUGS (3)
  1. MACROBID [CLARITHROMYCIN] [Suspect]
     Active Substance: CLARITHROMYCIN
     Indication: URINARY TRACT INFECTION
     Dosage: 100 MG
     Route: 065
  2. CELEBREX [Suspect]
     Active Substance: CELECOXIB
     Dosage: 1 DF
     Route: 065
  3. MACROBID [CLARITHROMYCIN] [Suspect]
     Active Substance: CLARITHROMYCIN
     Dosage: UNK, 2X/DAY
     Route: 065

REACTIONS (6)
  - Condition aggravated [Unknown]
  - Drug intolerance [Unknown]
  - Urticaria [Unknown]
  - Gait disturbance [Unknown]
  - Back pain [Unknown]
  - Anaphylactic reaction [Unknown]
